FAERS Safety Report 9032016 (Version 6)
Quarter: 2013Q2

REPORT INFORMATION
  Report Type: Spontaneous
  Country: US (occurrence: US)
  Receive Date: 20130125
  Receipt Date: 20130618
  Transmission Date: 20140414
  Serious: Yes (Death, Other)
  Sender: FDA-Public Use
  Company Number: US-PFIZER INC-2013026762

PATIENT
  Age: 76 Year
  Sex: Female

DRUGS (6)
  1. REVATIO [Suspect]
     Indication: PULMONARY ARTERIAL HYPERTENSION
     Dosage: 20 MG, 3X/DAY
     Route: 048
     Dates: start: 20120601, end: 201301
  2. AMIODARONE HCL [Suspect]
     Dosage: UNK
  3. DIGOXIN [Suspect]
     Dosage: UNK
  4. PROSTACYCLIN [Suspect]
     Dosage: UNK
  5. VALETRI [Concomitant]
     Dosage: UNK
     Route: 042
     Dates: end: 201301
  6. DOPAMINE [Concomitant]
     Dosage: UNK
     Route: 042
     Dates: end: 201301

REACTIONS (3)
  - Pulmonary hypertension [Fatal]
  - Cardiac failure [Fatal]
  - Clostridium difficile colitis [Unknown]
